FAERS Safety Report 7949959-6 (Version None)
Quarter: 2011Q4

REPORT INFORMATION
  Report Type: 
  Country: None (occurrence: None)
  Receive Date: 20111130
  Receipt Date: 20111116
  Transmission Date: 20120403
  Serious: Yes (Other)
  Sender: FDA-Public Use
  Company Number: US-BAYER-2011-111234

PATIENT
  Sex: Female

DRUGS (1)
  1. MIRENA [Suspect]
     Dosage: UNK
     Dates: start: 20090114, end: 20111015

REACTIONS (3)
  - AMENORRHOEA [None]
  - MENSTRUATION DELAYED [None]
  - OVARIAN CYST [None]
